FAERS Safety Report 6567018-4 (Version None)
Quarter: 2010Q1

REPORT INFORMATION
  Report Type: 
  Country: None (occurrence: None)
  Receive Date: 20100202
  Receipt Date: 20100126
  Transmission Date: 20100710
  Serious: Yes (Other)
  Sender: FDA-Public Use
  Company Number: US-GENENTECH-296634

PATIENT
  Sex: Female
  Weight: 49.887 kg

DRUGS (1)
  1. XOLAIR [Suspect]
     Indication: ASTHMA
     Dosage: 150 MG, Q4W
     Route: 030
     Dates: start: 20070123

REACTIONS (2)
  - CHEST PAIN [None]
  - PALPITATIONS [None]
